FAERS Safety Report 9196811 (Version 1)
Quarter: 2013Q1

REPORT INFORMATION
  Report Type: Report from Study
  Country: GB (occurrence: GB)
  Receive Date: 20130328
  Receipt Date: 20130328
  Transmission Date: 20140127
  Serious: Yes (Hospitalization, Other)
  Sender: FDA-Public Use
  Company Number: GB-MERCK-1303GBR012272

PATIENT
  Age: 61 Year
  Sex: Male
  Weight: 88.3 kg

DRUGS (2)
  1. VORINOSTAT [Suspect]
     Indication: PLASMA CELL MYELOMA
     Dosage: 300 MG, ON DAYS 1-7, 15-21
     Route: 048
     Dates: start: 20130304, end: 20130318
  2. LENALIDOMIDE [Suspect]
     Indication: PLASMA CELL MYELOMA
     Dosage: 10 MG, ON DAYS 1-21
     Route: 048
     Dates: start: 20130304, end: 20130318

REACTIONS (3)
  - Anuria [Not Recovered/Not Resolved]
  - Decreased appetite [Not Recovered/Not Resolved]
  - Chest pain [Not Recovered/Not Resolved]
